FAERS Safety Report 24903708 (Version 1)
Quarter: 2025Q1

REPORT INFORMATION
  Report Type: Report from Study
  Country: CA (occurrence: CA)
  Receive Date: 20250130
  Receipt Date: 20250130
  Transmission Date: 20250409
  Serious: Yes (Other)
  Sender: TAKEDA
  Company Number: CA-TAKEDA-2020TUS015245

PATIENT
  Age: 35 Year
  Sex: Female

DRUGS (7)
  1. VEDOLIZUMAB [Suspect]
     Active Substance: VEDOLIZUMAB
     Indication: Crohn^s disease
  2. VEDOLIZUMAB [Suspect]
     Active Substance: VEDOLIZUMAB
  3. VEDOLIZUMAB [Suspect]
     Active Substance: VEDOLIZUMAB
  4. PREDNISONE [Concomitant]
     Active Substance: PREDNISONE
     Dosage: 30 MILLIGRAM, QD
  5. CANNABIS SATIVA SUBSP. INDICA TOP [Concomitant]
     Active Substance: CANNABIS SATIVA SUBSP. INDICA TOP
     Indication: Depression
  6. CANNABIS SATIVA SUBSP. INDICA TOP [Concomitant]
     Active Substance: CANNABIS SATIVA SUBSP. INDICA TOP
     Indication: Pain
  7. COLESTID [Concomitant]
     Active Substance: COLESTIPOL HYDROCHLORIDE

REACTIONS (8)
  - Pulmonary pain [Not Recovered/Not Resolved]
  - Lower respiratory tract infection [Not Recovered/Not Resolved]
  - Asthma [Not Recovered/Not Resolved]
  - Productive cough [Not Recovered/Not Resolved]
  - Haemoptysis [Not Recovered/Not Resolved]
  - Anal abscess [Not Recovered/Not Resolved]
  - Fistula [Not Recovered/Not Resolved]
  - Chronic obstructive pulmonary disease [Unknown]

NARRATIVE: CASE EVENT DATE: 20250122
